FAERS Safety Report 8043205-3 (Version None)
Quarter: 2012Q1

REPORT INFORMATION
  Report Type: 
  Country: None (occurrence: None)
  Receive Date: 20120112
  Receipt Date: 20111229
  Transmission Date: 20120608
  Serious: Yes (Death, Other)
  Sender: FDA-Public Use
  Company Number: CO-MEDIMMUNE-MEDI-0013830

PATIENT
  Sex: Female
  Weight: 1.6 kg

DRUGS (4)
  1. METOCLOPRAMIDE [Concomitant]
     Route: 048
     Dates: start: 20111026
  2. SYNAGIS [Suspect]
     Route: 030
     Dates: start: 20111004, end: 20111004
  3. VITAMIN TAB [Concomitant]
     Route: 048
     Dates: start: 20111005
  4. IRON [Concomitant]
     Route: 048
     Dates: start: 20111008

REACTIONS (2)
  - PNEUMONIA VIRAL [None]
  - RESPIRATORY DISTRESS [None]
